FAERS Safety Report 17300386 (Version 1)
Quarter: 2020Q1

REPORT INFORMATION
  Report Type: Spontaneous
  Country: US (occurrence: US)
  Receive Date: 20200121
  Receipt Date: 20200121
  Transmission Date: 20200409
  Serious: Yes (Disabling)
  Sender: FDA-Public Use
  Company Number: None

PATIENT
  Age: 60 Year
  Sex: Female
  Weight: 67.5 kg

DRUGS (1)
  1. CIPRO [Suspect]
     Active Substance: CIPROFLOXACIN HYDROCHLORIDE
     Indication: URINARY TRACT INFECTION
     Dosage: ?          QUANTITY:1 TABLET(S);?
     Route: 048

REACTIONS (14)
  - Visual impairment [None]
  - Cartilage injury [None]
  - Groin pain [None]
  - Pain [None]
  - Musculoskeletal discomfort [None]
  - Arrhythmia [None]
  - Anxiety [None]
  - Immobile [None]
  - Lymphadenopathy [None]
  - Fall [None]
  - Skin exfoliation [None]
  - Tendon rupture [None]
  - Gait inability [None]
  - Back pain [None]

NARRATIVE: CASE EVENT DATE: 20011220
